FAERS Safety Report 12996298 (Version 1)
Quarter: 2016Q4

REPORT INFORMATION
  Report Type: Spontaneous
  Country: US (occurrence: US)
  Receive Date: 20161203
  Receipt Date: 20161203
  Transmission Date: 20170207
  Serious: No
  Sender: FDA-Public Use
  Company Number: PHEH2016US031179

PATIENT
  Sex: Female

DRUGS (1)
  1. HYCAMTIN [Suspect]
     Active Substance: TOPOTECAN HYDROCHLORIDE
     Indication: PRODUCT USED FOR UNKNOWN INDICATION
     Dosage: 3 MG, QD FOR 5 DAYS
     Route: 048
     Dates: start: 20160928

REACTIONS (3)
  - Eating disorder [Unknown]
  - Weight decreased [Unknown]
  - Nausea [Unknown]
